FAERS Safety Report 18733454 (Version 1)
Quarter: 2021Q1

REPORT INFORMATION
  Report Type: Spontaneous
  Country: US (occurrence: US)
  Receive Date: 20210113
  Receipt Date: 20210113
  Transmission Date: 20210419
  Serious: No
  Sender: FDA-Public Use
  Company Number: US-GILEAD-2021-0512491

PATIENT
  Age: 53 Year
  Sex: Male

DRUGS (5)
  1. RIBAVIRIN. [Suspect]
     Active Substance: RIBAVIRIN
     Indication: PRODUCT USED FOR UNKNOWN INDICATION
     Route: 065
  2. OMEPRAZOLE. [Concomitant]
     Active Substance: OMEPRAZOLE
  3. SOFOSBUVIR;VELPATASVIR [Suspect]
     Active Substance: SOFOSBUVIR\VELPATASVIR
     Indication: CHRONIC HEPATITIS C
     Dosage: 1 DOSAGE FORM, QD
     Route: 048
  4. TRAMADOL. [Concomitant]
     Active Substance: TRAMADOL
  5. PROPRANOLOL [Concomitant]
     Active Substance: PROPRANOLOL HYDROCHLORIDE

REACTIONS (4)
  - Feeling abnormal [Not Recovered/Not Resolved]
  - Pruritus [Recovered/Resolved]
  - Somnolence [Not Recovered/Not Resolved]
  - Fatigue [Not Recovered/Not Resolved]
